FAERS Safety Report 8158495-6 (Version None)
Quarter: 2012Q1

REPORT INFORMATION
  Report Type: 
  Country: None (occurrence: None)
  Receive Date: 20120223
  Receipt Date: 20120216
  Transmission Date: 20120608
  Serious: No
  Sender: FDA-Public Use
  Company Number: US-PFIZER INC-2012043200

PATIENT
  Sex: Female
  Weight: 60.3 kg

DRUGS (2)
  1. PREMARIN [Suspect]
     Indication: ENDOMETRIOSIS
  2. PREMARIN [Suspect]
     Indication: OFF LABEL USE
     Dosage: 0.03 MG, DAILY
     Dates: start: 19910101, end: 20111201

REACTIONS (3)
  - ARTHRALGIA [None]
  - JOINT STIFFNESS [None]
  - JOINT SWELLING [None]
